FAERS Safety Report 9126447 (Version 1)
Quarter: 2013Q1

REPORT INFORMATION
  Report Type: Spontaneous
  Country: US (occurrence: US)
  Receive Date: 20130121
  Receipt Date: 20130121
  Transmission Date: 20140127
  Serious: Yes (Hospitalization, Other)
  Sender: FDA-Public Use
  Company Number: CHPA2013US001262

PATIENT
  Age: 73 Year
  Sex: Female

DRUGS (6)
  1. CVS STEP 1 21MG [Suspect]
     Indication: SMOKING CESSATION THERAPY
     Dosage: 21 MG, QD
     Route: 062
     Dates: start: 20121223, end: 20121225
  2. DIAZEPAM [Concomitant]
     Indication: NERVOUSNESS
     Dosage: 5 MG, TID
  3. DIGOXIN [Concomitant]
     Indication: ATRIAL FIBRILLATION
     Dosage: 1.25 MCG, UNK
     Dates: end: 201301
  4. DIGOXIN [Concomitant]
     Dosage: 50 MG, UNK
  5. FLECAINIDE ACETATE [Concomitant]
     Indication: ATRIAL FIBRILLATION
     Dosage: 50 MG, UNK
  6. FLECAINIDE ACETATE [Concomitant]
     Dosage: 100 MG, UNK

REACTIONS (3)
  - Atrial fibrillation [Unknown]
  - Pneumonia [Recovered/Resolved]
  - Drug ineffective [None]
